FAERS Safety Report 12278667 (Version 1)
Quarter: 2016Q2

REPORT INFORMATION
  Report Type: Report from Study
  Country: US (occurrence: US)
  Receive Date: 20160418
  Receipt Date: 20160418
  Transmission Date: 20160815
  Serious: No
  Sender: FDA-Public Use
  Company Number: ADR-2014-01058

PATIENT
  Age: 46 Year
  Sex: Female

DRUGS (5)
  1. BUPIVACAINE. [Suspect]
     Active Substance: BUPIVACAINE
     Dosage: 11.487 MG/DAY.
     Route: 037
  2. COMPOUNDED BACLOFEN [Suspect]
     Active Substance: BACLOFEN
     Dosage: 91.90 MCG/DAY
     Route: 037
  3. HYDROMORPHONE [Suspect]
     Active Substance: HYDROMORPHONE
     Dosage: 2.2974 MG/DAY
     Route: 037
  4. HYDROCODONE [Concomitant]
     Active Substance: HYDROCODONE
     Route: 065
  5. IBUPROFEN. [Concomitant]
     Active Substance: IBUPROFEN
     Route: 065

REACTIONS (1)
  - Hypoaesthesia [Recovered/Resolved]

NARRATIVE: CASE EVENT DATE: 20140519
